FAERS Safety Report 10253738 (Version 5)
Quarter: 2015Q1

REPORT INFORMATION
  Report Type: Spontaneous
  Country: US (occurrence: US)
  Receive Date: 20140623
  Receipt Date: 20150204
  Transmission Date: 20150720
  Serious: Yes (Other)
  Sender: FDA-Public Use
  Company Number: US-PFIZER INC-2014166823

PATIENT
  Age: 37 Year
  Sex: Male
  Weight: 74 kg

DRUGS (2)
  1. BENEFIX [Suspect]
     Active Substance: COAGULATION FACTOR IX RECOMBINANT HUMAN\ISOPROPYL ALCOHOL
     Dosage: 2 DF, DAILY AS NEEDED
     Route: 042
     Dates: start: 201406, end: 201406
  2. BENEFIX [Suspect]
     Active Substance: COAGULATION FACTOR IX RECOMBINANT HUMAN\ISOPROPYL ALCOHOL
     Indication: HAEMORRHAGE
     Dosage: 6000 IU, AS NEEDED
     Route: 042
     Dates: start: 1994

REACTIONS (9)
  - Rotator cuff syndrome [Unknown]
  - Contusion [Unknown]
  - Muscle strain [Recovered/Resolved]
  - Back injury [Unknown]
  - Haemorrhage [Recovered/Resolved]
  - Skeletal injury [Unknown]
  - Myalgia [Unknown]
  - Injury [Recovered/Resolved]
  - Neck injury [Unknown]

NARRATIVE: CASE EVENT DATE: 20140612
